FAERS Safety Report 6768782-1 (Version None)
Quarter: 2010Q2

REPORT INFORMATION
  Report Type: 
  Country: None (occurrence: None)
  Receive Date: 20100611
  Receipt Date: 20100601
  Transmission Date: 20101027
  Serious: Yes (Other)
  Sender: FDA-Public Use
  Company Number: DSU-2010-02503

PATIENT
  Sex: Female

DRUGS (1)
  1. BENICAR [Suspect]
     Indication: HYPERTENSION
     Dosage: PER ORAL
     Route: 048

REACTIONS (2)
  - COELIAC DISEASE [None]
  - DIARRHOEA [None]
